FAERS Safety Report 4464211-1 (Version None)
Quarter: 2004Q4

REPORT INFORMATION
  Report Type: 
  Country: None (occurrence: None)
  Receive Date: 20041001
  Receipt Date: 20040720
  Transmission Date: 20050328
  Serious: Yes (Hospitalization)
  Sender: FDA-Public Use
  Company Number: FR-GLAXOSMITHKLINE-B0339620A

PATIENT
  Age: 76 Year
  Sex: Female
  Weight: 72 kg

DRUGS (10)
  1. LAMICTAL [Suspect]
     Indication: STATUS EPILEPTICUS
     Dosage: 100MG PER DAY
     Route: 048
     Dates: start: 20040507, end: 20040607
  2. CORDARONE [Suspect]
     Indication: ARRHYTHMIA
     Dosage: 200MG TWICE PER DAY
     Route: 048
     Dates: start: 20040601, end: 20040609
  3. AUGMENTIN [Concomitant]
     Dosage: 1G THREE TIMES PER DAY
     Route: 048
     Dates: start: 20040602
  4. PREVISCAN [Concomitant]
     Indication: ARRHYTHMIA PROPHYLAXIS
     Route: 048
     Dates: start: 20040501
  5. ACETAMINOPHEN [Concomitant]
     Dosage: 1G TWICE PER DAY
     Route: 048
     Dates: start: 20040501
  6. FORLAX [Concomitant]
     Indication: CONSTIPATION
     Dosage: 2UNIT PER DAY
     Route: 048
     Dates: start: 20040501
  7. MORPHINE [Concomitant]
     Indication: ILL-DEFINED DISORDER
     Dosage: 10MG PER DAY
     Route: 058
     Dates: start: 20040405
  8. ARICEPT [Concomitant]
     Dosage: 10MG PER DAY
     Route: 048
  9. DEPAKENE [Concomitant]
     Indication: EPILEPSY
     Route: 048
  10. DIGOXIN [Concomitant]
     Route: 048

REACTIONS (9)
  - ABDOMINAL PAIN [None]
  - BLOOD ALKALINE PHOSPHATASE INCREASED [None]
  - BLOOD BILIRUBIN INCREASED [None]
  - CHEST X-RAY ABNORMAL [None]
  - GAMMA-GLUTAMYLTRANSFERASE INCREASED [None]
  - HEPATITIS [None]
  - PYREXIA [None]
  - TRANSAMINASES INCREASED [None]
  - WHITE BLOOD CELL COUNT INCREASED [None]
